FAERS Safety Report 4610886-3 (Version None)
Quarter: 2005Q2

REPORT INFORMATION
  Report Type: 
  Country: None (occurrence: None)
  Receive Date: 20050302
  Receipt Date: 20041124
  Transmission Date: 20051028
  Serious: No
  Sender: FDA-Public Use
  Company Number: 2004-122502-NL

PATIENT
  Age: 30 Year
  Sex: Male

DRUGS (13)
  1. REMERON SOLTAB [Suspect]
     Indication: DEPRESSION
     Dosage: 30 MG QD ORAL
     Route: 048
     Dates: start: 20040301, end: 20040316
  2. REMERON SOLTAB [Suspect]
     Indication: DEPRESSION
     Dosage: 60 MG QD ORAL
     Route: 048
     Dates: start: 20040316
  3. REMERON SOLTAB [Suspect]
     Indication: DEPRESSION
     Dosage: 30 MG QD ORAL
     Route: 048
     Dates: end: 20040728
  4. CLOZAPINE [Suspect]
     Indication: PSYCHOTIC DISORDER
     Dosage: 700 MG QD ORAL
     Route: 048
     Dates: end: 20040722
  5. CLOZAPINE [Suspect]
     Indication: SCHIZOPHRENIA
     Dosage: 700 MG QD ORAL
     Route: 048
     Dates: end: 20040722
  6. CLOZAPINE [Suspect]
     Indication: PSYCHOTIC DISORDER
     Dosage: 600 MG QD ORAL
     Route: 048
     Dates: start: 20040601, end: 20040722
  7. CLOZAPINE [Suspect]
     Indication: SCHIZOPHRENIA
     Dosage: 600 MG QD ORAL
     Route: 048
     Dates: start: 20040601, end: 20040722
  8. CLOZAPINE [Suspect]
     Indication: PSYCHOTIC DISORDER
     Dosage: 500 MG QD ORAL
     Route: 048
     Dates: start: 20040723
  9. CLOZAPINE [Suspect]
     Indication: SCHIZOPHRENIA
     Dosage: 500 MG QD ORAL
     Route: 048
     Dates: start: 20040723
  10. MULTI-VITAMINS [Concomitant]
  11. VENLAFAXINE HCL [Concomitant]
  12. FERROUS SULFATE TAB [Concomitant]
  13. HYDROCHLOROTHIAZIDE [Concomitant]

REACTIONS (2)
  - LEUKOPENIA [None]
  - NEUTROPENIA [None]
